FAERS Safety Report 12290903 (Version 2)
Quarter: 2018Q4

REPORT INFORMATION
  Report Type: Spontaneous
  Country: HU (occurrence: HU)
  Receive Date: 20160421
  Receipt Date: 20181212
  Transmission Date: 20190204
  Serious: Yes (Other)
  Sender: FDA-Public Use
  Company Number: HU-TEVA-652786ISR

PATIENT
  Age: 27 Year
  Sex: Female

DRUGS (6)
  1. REVATIO [Suspect]
     Active Substance: SILDENAFIL CITRATE
     Indication: PULMONARY ARTERIAL HYPERTENSION
     Dosage: 60 MILLIGRAM DAILY; FROM GESTATIONAL WEEK 7
  2. BLOCALCIN RETARD [Suspect]
     Active Substance: DILTIAZEM HYDROCHLORIDE
     Indication: PULMONARY ARTERIAL HYPERTENSION
     Dosage: 360 MILLIGRAM DAILY; UNTIL GESTATIONAL WEEK 7
  3. MARFARIN [Suspect]
     Active Substance: WARFARIN
     Indication: PULMONARY ARTERIAL HYPERTENSION
     Dosage: 6 MILLIGRAM DAILY; UNTIL GESTATIONAL WEEK 7
  4. CLEXANE [Suspect]
     Active Substance: ENOXAPARIN SODIUM
     Indication: PROPHYLAXIS
     Dosage: .4 ML DAILY; FROM GESTATIONAL WEEK 7
  5. HYPOTHIAZID [Suspect]
     Active Substance: HYDROCHLOROTHIAZIDE
     Indication: PULMONARY ARTERIAL HYPERTENSION
     Dosage: 25 MILLIGRAM DAILY; UNTIL GESTATIONAL WEEK 7
  6. NORMODIPINE [Suspect]
     Active Substance: AMLODIPINE BESYLATE
     Indication: PULMONARY ARTERIAL HYPERTENSION
     Dosage: 15 MILLIGRAM DAILY; FROM GESTATIONAL WEEK 7

REACTIONS (3)
  - Foetal death [Unknown]
  - Premature labour [Unknown]
  - Maternal exposure during pregnancy [Unknown]
